FAERS Safety Report 13401688 (Version 2)
Quarter: 2018Q4

REPORT INFORMATION
  Report Type: Spontaneous
  Country: US (occurrence: US)
  Receive Date: 20170404
  Receipt Date: 20181106
  Transmission Date: 20190204
  Serious: Yes (Death, Other)
  Sender: FDA-Public Use
  Company Number: US-JNJFOC-20170401649

PATIENT
  Age: 54 Year
  Sex: Female

DRUGS (1)
  1. LEVAQUIN [Suspect]
     Active Substance: LEVOFLOXACIN
     Indication: URINARY TRACT INFECTION
     Route: 065

REACTIONS (2)
  - Aortic aneurysm [Fatal]
  - Aortic dissection [Unknown]

NARRATIVE: CASE EVENT DATE: 200412
